FAERS Safety Report 12334074 (Version 2)
Quarter: 2016Q2

REPORT INFORMATION
  Report Type: Spontaneous
  Country: FR (occurrence: FR)
  Receive Date: 20160504
  Receipt Date: 20160601
  Transmission Date: 20160815
  Serious: Yes (Other)
  Sender: FDA-Public Use
  Company Number: FR-JNJFOC-20160426283

PATIENT
  Age: 40 Year
  Sex: Male
  Weight: 71 kg

DRUGS (3)
  1. STELARA [Suspect]
     Active Substance: USTEKINUMAB
     Indication: PSORIASIS
     Route: 058
     Dates: start: 20131003
  2. NEOMERCAZOLE [Concomitant]
     Active Substance: CARBIMAZOLE
     Indication: BASEDOW^S DISEASE
     Route: 065
     Dates: start: 20150817
  3. STELARA [Suspect]
     Active Substance: USTEKINUMAB
     Indication: PSORIASIS
     Dosage: RECENT INFUSION
     Route: 058
     Dates: start: 20160515

REACTIONS (3)
  - Anogenital warts [Recovering/Resolving]
  - Mycoplasma infection [Recovered/Resolved]
  - Ureaplasma infection [Recovered/Resolved]

NARRATIVE: CASE EVENT DATE: 201603
